FAERS Safety Report 9856278 (Version 3)
Quarter: 2014Q1

REPORT INFORMATION
  Report Type: Report from Study
  Country: US (occurrence: US)
  Receive Date: 20140130
  Receipt Date: 20140328
  Transmission Date: 20141002
  Serious: Yes (Death, Hospitalization)
  Sender: FDA-Public Use
  Company Number: PHEH2014US002042

PATIENT
  Sex: Female

DRUGS (4)
  1. TASIGNA [Suspect]
     Indication: ACUTE LYMPHOCYTIC LEUKAEMIA
     Dosage: 300 MG, BID
     Route: 048
     Dates: start: 20131120, end: 20131223
  2. TASIGNA [Suspect]
     Indication: OFF LABEL USE
  3. HYDROXYUREA [Concomitant]
     Indication: CHRONIC MYELOID LEUKAEMIA
     Dosage: UNK
     Dates: start: 20131121
  4. ALLOPURINOL [Concomitant]
     Indication: BLOOD URIC ACID INCREASED

REACTIONS (10)
  - Pancytopenia [Fatal]
  - White blood cell count decreased [Fatal]
  - Platelet count decreased [Fatal]
  - Haemoglobin decreased [Fatal]
  - Asthenia [Fatal]
  - Lethargy [Fatal]
  - Dyspnoea [Fatal]
  - Pallor [Fatal]
  - Chronic myeloid leukaemia [Fatal]
  - Acute lymphocytic leukaemia [Unknown]
